FAERS Safety Report 4731202-2 (Version None)
Quarter: 2005Q3

REPORT INFORMATION
  Report Type: 
  Country: None (occurrence: None)
  Receive Date: 20050729
  Receipt Date: 20050719
  Transmission Date: 20060218
  Serious: Yes (Other)
  Sender: FDA-Public Use
  Company Number: 2005103396

PATIENT
  Age: 85 Year
  Sex: Female
  Weight: 54.4316 kg

DRUGS (8)
  1. LISTERINE (MENTHOL, METHYL SALICYLATE, EUCALYPTOL, THYMOL) [Suspect]
     Indication: DENTAL DISORDER PROPHYLAXIS
     Dosage: 1/3 OF A 5 OZ CUP BID, ORAL TOPICAL
     Route: 061
  2. LISTERINE ESSENTIAL CARE TOOTHPASTE (MENTHOL, METHYL SALICYLATE, SODIU [Suspect]
     Indication: DENTAL DISORDER PROPHYLAXIS
     Dosage: ORAL, TOPICAL
     Route: 061
     Dates: start: 20040101
  3. CENTRUM SILVER (ASCORBIC ACID, CALCIUM, MINERAL NOS, RETINOL, TOCOPHER [Concomitant]
  4. DIOVAN HCT [Concomitant]
  5. ACETYLSALICYLIC ACID SRT [Concomitant]
  6. ATORVASTATIN CALCIUM [Concomitant]
  7. ALENDRONATE SODIUM [Concomitant]
  8. SOTALOL HCL [Concomitant]

REACTIONS (5)
  - GINGIVAL BLEEDING [None]
  - GINGIVAL PAIN [None]
  - GINGIVITIS [None]
  - PARAESTHESIA [None]
  - TOOTH DISORDER [None]
